FAERS Safety Report 11177802 (Version 1)
Quarter: 2015Q2

REPORT INFORMATION
  Report Type: Spontaneous
  Country: US (occurrence: None)
  Receive Date: 20150515
  Receipt Date: 20150515
  Transmission Date: 20150821
  Serious: Yes (Hospitalization)
  Sender: FDA-Public Use
  Company Number: 116396

PATIENT
  Age: 78 Year
  Sex: Male
  Weight: 95 kg

DRUGS (8)
  1. CIMZIA [Suspect]
     Active Substance: CERTOLIZUMAB PEGOL
     Indication: CROHN^S DISEASE
     Route: 058
     Dates: start: 20131117
  2. IRON (IRON) [Concomitant]
     Active Substance: IRON
  3. PARADAXA (DABIGATRAN) [Concomitant]
  4. PENTASA (PENTASA) [Concomitant]
  5. VIT. D3 (COLECALCIFEROL) [Concomitant]
  6. CARVEDILOL (CARVEDILOL) [Concomitant]
     Active Substance: CARVEDILOL
  7. MOEXIPRIL (MOEXIPRIL) [Concomitant]
  8. PREDNISONE (PREDNISONE) [Concomitant]
     Active Substance: PREDNISONE

REACTIONS (3)
  - Inappropriate schedule of drug administration [None]
  - Intestinal obstruction [None]
  - Drug ineffective [None]

NARRATIVE: CASE EVENT DATE: 201311
